FAERS Safety Report 8953802 (Version 4)
Quarter: 2013Q1

REPORT INFORMATION
  Report Type: Report from Study
  Country: CN (occurrence: CN)
  Receive Date: 20121206
  Receipt Date: 20130212
  Transmission Date: 20140127
  Serious: Yes (Congenital Anomaly, Other)
  Sender: FDA-Public Use
  Company Number: CN-US-EMD SERONO, INC.-7179127

PATIENT
  Sex: 0

DRUGS (2)
  1. GONAL-F [Suspect]
     Indication: IN VITRO FERTILISATION
     Route: 064
     Dates: start: 20111015, end: 20111022
  2. LUVERIS [Suspect]
     Indication: IN VITRO FERTILISATION
     Route: 064
     Dates: start: 20111015, end: 20111017

REACTIONS (1)
  - Cytogenetic abnormality [Not Recovered/Not Resolved]
